FAERS Safety Report 8326766-6 (Version None)
Quarter: 2012Q2

REPORT INFORMATION
  Report Type: 
  Country: None (occurrence: None)
  Receive Date: 20120409
  Receipt Date: 20111025
  Transmission Date: 20120825
  Serious: Yes (Other)
  Sender: FDA-Public Use
  Company Number: 300145326-2011-00008

PATIENT

DRUGS (1)
  1. BLOOD VESSEL TISSUE HUMAN [Suspect]

REACTIONS (3)
  - TRANSMISSION OF AN INFECTIOUS AGENT VIA A MEDICINAL PRODUCT [None]
  - VASCULAR GRAFT COMPLICATION [None]
  - GRAFT INFECTION [None]
